FAERS Safety Report 6159364-3 (Version None)
Quarter: 2009Q2

REPORT INFORMATION
  Report Type: 
  Country: None (occurrence: None)
  Receive Date: 20090417
  Receipt Date: 20090407
  Transmission Date: 20091009
  Serious: Yes (Death, Life-Threatening, Hospitalization)
  Sender: FDA-Public Use
  Company Number: FR-AMGEN-QUU341828

PATIENT
  Age: 67 Year
  Sex: Male

DRUGS (10)
  1. ARANESP [Suspect]
     Indication: ANAEMIA OF MALIGNANT DISEASE
     Route: 058
     Dates: start: 20090107, end: 20090315
  2. ARIXTRA [Concomitant]
     Route: 058
     Dates: start: 20090211, end: 20090311
  3. TAHOR [Concomitant]
  4. DOLIPRANE [Concomitant]
  5. TRAMADOL HCL [Concomitant]
  6. SOLUPRED [Concomitant]
  7. GEMZAR [Concomitant]
  8. MOTILIUM [Concomitant]
  9. ROCEPHIN [Concomitant]
  10. OFLOXACIN [Concomitant]

REACTIONS (1)
  - PULMONARY EMBOLISM [None]
